FAERS Safety Report 25646230 (Version 1)
Quarter: 2025Q3

REPORT INFORMATION
  Report Type: Spontaneous
  Country: US (occurrence: US)
  Receive Date: 20250805
  Receipt Date: 20250805
  Transmission Date: 20251020
  Serious: Yes (Other)
  Sender: BIOMARIN
  Company Number: US-SA-2025SA222350

PATIENT
  Age: 27 Year
  Sex: Male

DRUGS (1)
  1. LARONIDASE [Suspect]
     Active Substance: LARONIDASE
     Indication: Mucopolysaccharidosis I
     Dosage: 34.8 (UNITS UNSPECIFIED), QW
     Dates: start: 200307

REACTIONS (3)
  - Glaucoma [Recovered/Resolved]
  - Blindness [Recovering/Resolving]
  - Mitral valve disease [Recovered/Resolved]
